FAERS Safety Report 4951242-8 (Version None)
Quarter: 2006Q1

REPORT INFORMATION
  Report Type: 
  Country: None (occurrence: None)
  Receive Date: 20060317
  Receipt Date: 20060306
  Transmission Date: 20060701
  Serious: Yes (Disabling)
  Sender: FDA-Public Use
  Company Number: 13621

PATIENT
  Age: 41 Year
  Sex: Male

DRUGS (3)
  1. PAMIDRONATE DISODIUM [Suspect]
     Indication: ANKYLOSING SPONDYLITIS
     Dosage: 60 MG IV
     Route: 042
     Dates: start: 20060117, end: 20060117
  2. SULFASALAZINE [Concomitant]
  3. DICLOFENAC [Concomitant]

REACTIONS (3)
  - ARTHRALGIA [None]
  - MUSCULOSKELETAL STIFFNESS [None]
  - PYREXIA [None]
